FAERS Safety Report 17868346 (Version 1)
Quarter: 2020Q2

REPORT INFORMATION
  Report Type: Spontaneous
  Country: CA (occurrence: CA)
  Receive Date: 20200606
  Receipt Date: 20200606
  Transmission Date: 20200714
  Serious: Yes (Other)
  Sender: FDA-Public Use
  Company Number: CA-ROCHE-2612942

PATIENT
  Age: 49 Year
  Sex: Female

DRUGS (8)
  1. ERIBULIN MESYLATE [Suspect]
     Active Substance: ERIBULIN MESYLATE
     Indication: BREAST CANCER
     Route: 065
  2. FULVESTRANT. [Suspect]
     Active Substance: FULVESTRANT
     Indication: BREAST CANCER
     Route: 065
  3. CLODRONATE DISODIUM [Suspect]
     Active Substance: CLODRONATE DISODIUM
     Indication: BREAST CANCER
     Route: 065
  4. LETROZOLE. [Suspect]
     Active Substance: LETROZOLE
     Indication: BREAST CANCER
     Route: 065
  5. PACLITAXEL. [Suspect]
     Active Substance: PACLITAXEL
     Indication: BREAST CANCER
     Route: 042
  6. TAMOXIFEN [Suspect]
     Active Substance: TAMOXIFEN
     Indication: BREAST CANCER
     Route: 065
  7. XELODA [Suspect]
     Active Substance: CAPECITABINE
     Indication: BREAST CANCER
     Route: 065
  8. PALBOCICLIB [Suspect]
     Active Substance: PALBOCICLIB
     Indication: BREAST CANCER
     Route: 065

REACTIONS (7)
  - Protein total increased [Unknown]
  - Platelet count decreased [Unknown]
  - Headache [Unknown]
  - Asthenia [Unknown]
  - Immunosuppression [Unknown]
  - Meningoencephalitis herpetic [Unknown]
  - Neoplasm progression [Unknown]
